FAERS Safety Report 8134662-2 (Version None)
Quarter: 2012Q1

REPORT INFORMATION
  Report Type: 
  Country: None (occurrence: None)
  Receive Date: 20120214
  Receipt Date: 20120210
  Transmission Date: 20120608
  Serious: Yes (Other)
  Sender: FDA-Public Use
  Company Number: GB-TEVA-321875ISR

PATIENT
  Age: 80 Year
  Sex: Male

DRUGS (8)
  1. WARFARIN SODIUM [Concomitant]
     Dosage: AS PER INR
  2. TAMSULOSIN HCL [Concomitant]
     Route: 048
  3. RAMIPRIL [Suspect]
     Indication: HYPERTENSION
     Route: 048
  4. LEVOTHYROXINE SODIUM [Concomitant]
     Dates: start: 20120125
  5. FINASTERIDE [Concomitant]
     Route: 048
  6. DOUBLEBASE [Concomitant]
  7. LAMOTRIGINE [Suspect]
     Indication: EPILEPSY
  8. LATANOPROST [Concomitant]
     Indication: GLAUCOMA
     Dosage: 50UG/ML
     Route: 047

REACTIONS (3)
  - MYELODYSPLASTIC SYNDROME [None]
  - HAEMOGLOBIN DECREASED [None]
  - WHITE BLOOD CELL COUNT DECREASED [None]
